FAERS Safety Report 4348640-2 (Version None)
Quarter: 2004Q2

REPORT INFORMATION
  Report Type: 
  Country: None (occurrence: None)
  Receive Date: 20040423
  Receipt Date: 20040409
  Transmission Date: 20050107
  Serious: Yes (Hospitalization)
  Sender: FDA-Public Use
  Company Number: 2004AP01944

PATIENT
  Age: 64 Year
  Sex: Male

DRUGS (15)
  1. IRESSA [Suspect]
     Indication: NON-SMALL CELL LUNG CANCER
     Dosage: 250 MG DAILY PO
     Route: 048
     Dates: start: 20040226, end: 20040322
  2. CRAVIT [Suspect]
     Dosage: 300 MG DAILY PO
     Route: 048
     Dates: start: 20040318
  3. MEXITIL [Suspect]
     Dosage: 300 MG DAILY PO
     Route: 048
     Dates: start: 20040319
  4. PURSENNID [Concomitant]
  5. MUCOSAL [Concomitant]
  6. RIVOTRIL [Concomitant]
  7. ALDACTONE [Concomitant]
  8. BAKTAR [Concomitant]
  9. NEOSTELINGREEN [Concomitant]
  10. RINDERON-VG [Concomitant]
  11. RESTAMIN [Concomitant]
  12. DUROTEP JANSSEN [Concomitant]
  13. OPSO [Concomitant]
  14. AMOXAN [Concomitant]
  15. RADIATION THERAPY [Concomitant]

REACTIONS (11)
  - ANAEMIA [None]
  - CONDITION AGGRAVATED [None]
  - DRY SKIN [None]
  - GENERAL PHYSICAL HEALTH DETERIORATION [None]
  - INTERSTITIAL LUNG DISEASE [None]
  - NAUSEA [None]
  - NON-SMALL CELL LUNG CANCER [None]
  - PNEUMOCYSTIS CARINII PNEUMONIA [None]
  - RASH [None]
  - TACHYCARDIA [None]
  - VOMITING [None]
